FAERS Safety Report 5361362-4 (Version None)
Quarter: 2007Q2

REPORT INFORMATION
  Report Type: 
  Country: None (occurrence: None)
  Receive Date: 20070612
  Receipt Date: 20070529
  Transmission Date: 20071010
  Serious: Yes (Death, Life-Threatening, Hospitalization)
  Sender: FDA-Public Use
  Company Number: AT-JNJFOC-20070502153

PATIENT
  Age: 65 Year
  Sex: Female
  Weight: 55 kg

DRUGS (5)
  1. DECITABINE (DECITABINE) LYOPHILIZED POWDER [Suspect]
     Indication: MYELODYSPLASTIC SYNDROME
     Dosage: 135 MG/M2; INTRAVENOUS
     Route: 042
     Dates: start: 20070420, end: 20070423
  2. PREDNISOLONE [Concomitant]
  3. COL D VIDA (ALL OTHER THERAPEUTIC PRODUCTS) [Concomitant]
  4. LEGALON (SILYMARIN) [Concomitant]
  5. URSOFALK (URSODEXYCHOLIC ACID) [Concomitant]

REACTIONS (4)
  - HAEMOLYSIS [None]
  - HAEMORRHAGIC DISORDER [None]
  - LUNG INFILTRATION [None]
  - PNEUMONIA [None]
